FAERS Safety Report 25633328 (Version 2)
Quarter: 2025Q4

REPORT INFORMATION
  Report Type: Spontaneous
  Country: CN (occurrence: CN)
  Receive Date: 20250801
  Receipt Date: 20251001
  Transmission Date: 20260118
  Serious: Yes (Hospitalization, Other)
  Sender: RANBAXY
  Company Number: CN-SUN PHARMACEUTICAL INDUSTRIES LTD-2025R1-515245

PATIENT
  Age: 38 Year
  Sex: Male

DRUGS (1)
  1. SULFAMETHOXAZOLE\TRIMETHOPRIM [Suspect]
     Active Substance: SULFAMETHOXAZOLE\TRIMETHOPRIM
     Indication: Brain abscess
     Dosage: 0.16/0.8 G
     Route: 048

REACTIONS (2)
  - Drug hypersensitivity [Unknown]
  - Disease recurrence [Recovered/Resolved]
